FAERS Safety Report 17678391 (Version 1)
Quarter: 2020Q2

REPORT INFORMATION
  Report Type: Spontaneous
  Country: GB (occurrence: GB)
  Receive Date: 20200417
  Receipt Date: 20200417
  Transmission Date: 20200714
  Serious: Yes (Hospitalization)
  Sender: FDA-Public Use
  Company Number: GB-TEVA-2020-GB-1223631

PATIENT
  Age: 73 Year
  Sex: Female

DRUGS (8)
  1. BENDROFLUMETHIAZIDE [Concomitant]
     Active Substance: BENDROFLUMETHIAZIDE
     Dosage: IN MORNING
     Route: 048
  2. LISINOPRIL. [Concomitant]
     Active Substance: LISINOPRIL
     Dosage: 20 MILLIGRAM DAILY; IN MORNING
     Route: 048
  3. DICLOFENAC SODIUM. [Suspect]
     Active Substance: DICLOFENAC SODIUM
     Dosage: 150MG
     Route: 048
     Dates: end: 20191028
  4. NOVORAPID [Concomitant]
     Active Substance: INSULIN ASPART
     Dosage: 14 UNITS IN MORNING, 4 UNITS AT LUNCH, 14 UNITS AT TEATIME
     Route: 058
  5. LEVEMIR [Concomitant]
     Active Substance: INSULIN DETEMIR
     Dosage: IN MORNING AND AT TEATIME. 100UNITS/ML
     Route: 058
  6. LEVOTHYROXINE. [Concomitant]
     Active Substance: LEVOTHYROXINE
     Dosage: IN MORNING
     Route: 048
  7. ERYTHROMYCIN. [Concomitant]
     Active Substance: ERYTHROMYCIN
     Dosage: 1000MG, ONE WEEK PRIOR TO CATHETER CHANGES
     Route: 048
  8. TRAMADOL. [Concomitant]
     Active Substance: TRAMADOL
     Dosage: ONE OR TWO FOUR TIMES A DAY
     Route: 048

REACTIONS (2)
  - Gastric ulcer haemorrhage [Unknown]
  - Gastric ulcer perforation [Recovering/Resolving]

NARRATIVE: CASE EVENT DATE: 20191028
